FAERS Safety Report 22179628 (Version 1)
Quarter: 2023Q2

REPORT INFORMATION
  Report Type: Report from Study
  Country: LT (occurrence: LT)
  Receive Date: 20230406
  Receipt Date: 20230406
  Transmission Date: 20230721
  Serious: Yes (Death, Hospitalization)
  Sender: FDA-Public Use
  Company Number: LT-002147023-NVSC2023LT078125

PATIENT
  Sex: Male

DRUGS (2)
  1. DABRAFENIB [Suspect]
     Active Substance: DABRAFENIB
     Indication: Hairy cell leukaemia
     Dosage: UNK
     Route: 065
     Dates: start: 2019
  2. TRAMETINIB [Suspect]
     Active Substance: TRAMETINIB
     Indication: Hairy cell leukaemia
     Dosage: UNK
     Route: 065
     Dates: start: 2019

REACTIONS (1)
  - Pneumonia [Fatal]
